FAERS Safety Report 22602809 (Version 1)
Quarter: 2023Q2

REPORT INFORMATION
  Report Type: Spontaneous
  Country: IT (occurrence: IT)
  Receive Date: 20230615
  Receipt Date: 20230615
  Transmission Date: 20230722
  Serious: Yes (Death)
  Sender: FDA-Public Use
  Company Number: IT-AMGEN-ITASP2023099258

PATIENT
  Age: 55 Year
  Sex: Female

DRUGS (16)
  1. TRASTUZUMAB [Suspect]
     Active Substance: TRASTUZUMAB
     Indication: HER2 negative breast cancer
     Dosage: 8 MILLIGRAM
     Route: 065
  2. TRASTUZUMAB [Suspect]
     Active Substance: TRASTUZUMAB
     Dosage: 6 MILLIGRAM
     Route: 065
  3. TRASTUZUMAB [Suspect]
     Active Substance: TRASTUZUMAB
     Dosage: 8 MILLIGRAM/MG, Q3WK
     Route: 065
  4. TRASTUZUMAB [Suspect]
     Active Substance: TRASTUZUMAB
     Dosage: 6 MILLIGRAM/MG, Q3WK
     Route: 065
  5. PERTUZUMAB [Concomitant]
     Active Substance: PERTUZUMAB
     Indication: HER2 negative breast cancer
     Dosage: 840 MILLIGRAM
     Route: 065
  6. PERTUZUMAB [Concomitant]
     Active Substance: PERTUZUMAB
     Dosage: 420 MILLIGRAM
     Route: 065
  7. TAXOL [Concomitant]
     Active Substance: PACLITAXEL
     Dosage: 175 MILLIGRAM/MQ Q2WK
     Route: 065
  8. ADO-TRASTUZUMAB EMTANSINE [Concomitant]
     Active Substance: ADO-TRASTUZUMAB EMTANSINE
     Dosage: 3.6 MILLIGRAM/KG, Q3WK
     Route: 065
  9. LETROZOLE [Concomitant]
     Active Substance: LETROZOLE
     Dosage: 2.5 MILLIGRAM, QD
     Route: 065
  10. FULVESTRANT [Concomitant]
     Active Substance: FULVESTRANT
     Dosage: 500 MILLIGRAM, Q4WK (DAY 1, 15, 28)
     Route: 065
  11. CAPECITABINE [Concomitant]
     Active Substance: CAPECITABINE
     Dosage: 2000 MILLIGRAM/M^2
     Route: 065
  12. VINORELBINE [Concomitant]
     Active Substance: VINORELBINE TARTRATE
     Dosage: 25 MILLIGRAM/MQ (AT DAY 1 AND 8)
     Route: 065
  13. EPIRUBICIN [Concomitant]
     Active Substance: EPIRUBICIN
     Dosage: 90 MILLIGRAM/MQ, Q2WK
     Route: 065
  14. CYCLOPHOSPHAMIDE [Concomitant]
     Active Substance: CYCLOPHOSPHAMIDE
     Dosage: 600 MILLIGRAM/MQ, Q2WK
     Route: 065
  15. PEGFILGRASTIM [Concomitant]
     Active Substance: PEGFILGRASTIM
     Dosage: UNK
     Route: 065
  16. PALBOCICLIB [Concomitant]
     Active Substance: PALBOCICLIB
     Dosage: UNK UNK, Q4WK
     Route: 065

REACTIONS (3)
  - Breast cancer metastatic [Fatal]
  - Therapy partial responder [Unknown]
  - Off label use [Unknown]
